FAERS Safety Report 8084480 (Version 2)
Quarter: 2019Q2

REPORT INFORMATION
  Report Type: Spontaneous
  Country: IE (occurrence: IE)
  Receive Date: 20110810
  Receipt Date: 20190408
  Transmission Date: 20190711
  Serious: Yes (Other)
  Sender: FDA-Public Use
  Company Number: GB-ELI_LILLY_AND_COMPANY-GB201107007889

PATIENT
  Age: 58 Year
  Sex: Male

DRUGS (13)
  1. LIPITOR [Concomitant]
     Active Substance: ATORVASTATIN CALCIUM
     Dosage: 10 MG, QD
  2. NU-SEALS ASPIRIN [Concomitant]
     Active Substance: ASPIRIN
     Dosage: 75 MG, QD
  3. OLANZAPINE. [Suspect]
     Active Substance: OLANZAPINE
     Indication: SCHIZOPHRENIA
     Dosage: UNK UNK, UNKNOWN
     Route: 065
  4. OMEPRAZOLE. [Concomitant]
     Active Substance: OMEPRAZOLE
     Dosage: 20 MG, QD
  5. AMISULPRIDE [Suspect]
     Active Substance: AMISULPRIDE
     Indication: SCHIZOPHRENIA
     Dosage: UNK, UNKNOWN
     Route: 065
     Dates: start: 2000
  6. MOVICOL [Concomitant]
     Active Substance: POLYETHYLENE GLYCOL 3350\POTASSIUM CHLORIDE\SODIUM BICARBONATE\SODIUM CHLORIDE
     Dosage: 1 DF, QD
     Route: 048
  7. SALBUTAMOL [Concomitant]
     Active Substance: ALBUTEROL
     Indication: CHRONIC OBSTRUCTIVE PULMONARY DISEASE
     Dosage: 2 DF, TID
  8. ZOPICLONE [Concomitant]
     Active Substance: ZOPICLONE
     Dosage: 7.5 MG, QD
  9. RISPERIDONE. [Suspect]
     Active Substance: RISPERIDONE
     Indication: SCHIZOPHRENIA
     Dosage: 5 MG, QD
     Route: 065
  10. CHLORPROMAZINE. [Concomitant]
     Active Substance: CHLORPROMAZINE
  11. MOVICOL [Concomitant]
     Active Substance: POLYETHYLENE GLYCOL 3350\POTASSIUM CHLORIDE\SODIUM BICARBONATE\SODIUM CHLORIDE
     Dosage: 1 DF, BID
     Route: 048
  12. CLOZARIL [Suspect]
     Active Substance: CLOZAPINE
     Indication: SCHIZOPHRENIA
     Dosage: 500 MG, QD
     Route: 048
     Dates: start: 20021025, end: 20110202
  13. IPRATROPIUM BROMIDE. [Concomitant]
     Active Substance: IPRATROPIUM BROMIDE
     Indication: CHRONIC OBSTRUCTIVE PULMONARY DISEASE

REACTIONS (32)
  - Red blood cell count increased [Unknown]
  - Somnolence [Unknown]
  - Neutrophil count decreased [Recovered/Resolved]
  - Neutrophil count increased [Unknown]
  - Agitation [Unknown]
  - Haemorrhoids [Unknown]
  - Salivary hypersecretion [Unknown]
  - Tearfulness [Unknown]
  - Vomiting [Recovered/Resolved]
  - Decreased appetite [Unknown]
  - Polycythaemia [Not Recovered/Not Resolved]
  - Aggression [Unknown]
  - Splenomegaly [Unknown]
  - Mental impairment [Unknown]
  - Disturbance in attention [Unknown]
  - Abnormal behaviour [Unknown]
  - Blood alkaline phosphatase increased [Unknown]
  - Impulsive behaviour [Unknown]
  - Schizophrenia [Unknown]
  - Weight decreased [Unknown]
  - Mean cell volume abnormal [Unknown]
  - White blood cell count increased [Unknown]
  - Neutropenia [Recovered/Resolved]
  - Leukopenia [Recovered/Resolved]
  - Constipation [Unknown]
  - Speech disorder [Unknown]
  - General physical health deterioration [Unknown]
  - Psychotic disorder [Unknown]
  - Body temperature increased [Unknown]
  - White blood cell count decreased [Recovered/Resolved]
  - Haematocrit increased [Unknown]
  - Insomnia [Unknown]

NARRATIVE: CASE EVENT DATE: 200601
